FAERS Safety Report 8403257-5 (Version None)
Quarter: 2012Q2

REPORT INFORMATION
  Report Type: 
  Country: None (occurrence: None)
  Receive Date: 20120601
  Receipt Date: 20120523
  Transmission Date: 20120825
  Serious: Yes (Hospitalization, Disabling)
  Sender: FDA-Public Use
  Company Number: US-JNJFOC-20110207937

PATIENT
  Sex: Male
  Weight: 118.39 kg

DRUGS (6)
  1. REMICADE [Suspect]
     Route: 042
     Dates: start: 20020711
  2. ANTIHISTAMINE [Concomitant]
     Indication: PREMEDICATION
  3. ACETAMINOPHEN [Concomitant]
     Indication: PREMEDICATION
  4. REMICADE [Suspect]
     Indication: CROHN'S DISEASE
     Dosage: 3 DOSES PRIOR TO REGISTRATION
     Route: 042
  5. METHOTREXATE [Concomitant]
     Indication: CROHN'S DISEASE
  6. REMICADE [Suspect]
     Dosage: TOTAL OF 48 DOSES
     Route: 042
     Dates: start: 20100624

REACTIONS (2)
  - BRADYCARDIA [None]
  - CEREBRAL INFARCTION [None]
